FAERS Safety Report 25258253 (Version 1)
Quarter: 2025Q2

REPORT INFORMATION
  Report Type: Spontaneous
  Country: US (occurrence: US)
  Receive Date: 20250501
  Receipt Date: 20250501
  Transmission Date: 20250716
  Serious: No
  Sender: ELI LILLY AND COMPANY
  Company Number: US-ELI_LILLY_AND_COMPANY-US202504025603

PATIENT
  Age: 63 Year
  Sex: Female

DRUGS (1)
  1. VERZENIO [Suspect]
     Active Substance: ABEMACICLIB
     Indication: Breast cancer female
     Dosage: 100 MG, BID
     Route: 048

REACTIONS (8)
  - Sciatica [Unknown]
  - Neuropathy peripheral [Unknown]
  - Depression [Unknown]
  - Product dose omission issue [Unknown]
  - Arthralgia [Unknown]
  - Asthenia [Unknown]
  - Anaemia [Unknown]
  - Diarrhoea [Unknown]
